FAERS Safety Report 20730777 (Version 2)
Quarter: 2024Q2

REPORT INFORMATION
  Report Type: Spontaneous
  Country: US (occurrence: US)
  Receive Date: 20220420
  Receipt Date: 20240415
  Transmission Date: 20240715
  Serious: Yes (Hospitalization)
  Sender: FDA-Public Use
  Company Number: US-ASTELLAS-2021US016513

PATIENT
  Age: 67 Year
  Sex: Male

DRUGS (4)
  1. LEXISCAN [Suspect]
     Active Substance: REGADENOSON
     Indication: Product used for unknown indication
     Dosage: UNK, (0.08 MG /ML) UNKNOWN FREQ.
     Route: 065
     Dates: start: 20210428, end: 20210428
  2. LEXISCAN [Suspect]
     Active Substance: REGADENOSON
     Indication: Product used for unknown indication
     Dosage: UNK, (0.08 MG /ML) UNKNOWN FREQ.
     Route: 065
     Dates: start: 20210428, end: 20210428
  3. LEXISCAN [Suspect]
     Active Substance: REGADENOSON
     Indication: Product used for unknown indication
     Dosage: UNK, (0.08 MG /ML) UNKNOWN FREQ.
     Route: 065
     Dates: start: 20210428, end: 20210428
  4. LEXISCAN [Suspect]
     Active Substance: REGADENOSON
     Indication: Product used for unknown indication
     Dosage: UNK, (0.08 MG /ML) UNKNOWN FREQ.
     Route: 065
     Dates: start: 20210428, end: 20210428

REACTIONS (2)
  - Chest pain [Unknown]
  - Pain in extremity [Unknown]

NARRATIVE: CASE EVENT DATE: 20210428
